FAERS Safety Report 8243618-0 (Version None)
Quarter: 2012Q1

REPORT INFORMATION
  Report Type: 
  Country: None (occurrence: None)
  Receive Date: 20120329
  Receipt Date: 20120319
  Transmission Date: 20120608
  Serious: Yes (Hospitalization, Other)
  Sender: FDA-Public Use
  Company Number: US-JNJFOC-20120311852

PATIENT
  Age: 22 Year
  Sex: Female

DRUGS (4)
  1. TYLENOL W/ CODEINE NO. 3 [Suspect]
     Indication: TOOTHACHE
     Dosage: 6-8 TABLETS PER DAY FOR 10-14 DAYS
     Route: 048
  2. ACETAMINOPHEN [Suspect]
     Route: 048
  3. ACETAMINOPHEN [Suspect]
     Indication: TOOTHACHE
     Dosage: 12 TABLETS FOR 10-14 DAYS
     Route: 048
  4. MULTI-VITAMINS [Concomitant]
     Indication: PREGNANCY

REACTIONS (5)
  - CHEST PAIN [None]
  - MATERNAL EXPOSURE DURING PREGNANCY [None]
  - FOETAL DEATH [None]
  - OVERDOSE [None]
  - ACUTE HEPATIC FAILURE [None]
